FAERS Safety Report 16693477 (Version 1)
Quarter: 2019Q3

REPORT INFORMATION
  Report Type: Spontaneous
  Country: GB (occurrence: GB)
  Receive Date: 20190812
  Receipt Date: 20190812
  Transmission Date: 20191004
  Serious: Yes (Hospitalization)
  Sender: FDA-Public Use
  Company Number: GB-PFIZER INC-2019338334

PATIENT
  Age: 74 Year
  Sex: Female
  Weight: 52 kg

DRUGS (11)
  1. VENOFER [Suspect]
     Active Substance: IRON SUCROSE
     Indication: IRON DEFICIENCY ANAEMIA
     Dosage: 50 MG, UNK (DILUTED IN 100ML NACL 0.9%)
     Route: 042
     Dates: start: 20190709, end: 20190709
  2. CINACALCET. [Concomitant]
     Active Substance: CINACALCET
     Indication: HYPERCALCAEMIA
  3. TINZAPARIN [Concomitant]
     Active Substance: TINZAPARIN
  4. BACTERIOSTATIC SODIUM CHLORIDE [Suspect]
     Active Substance: SODIUM CHLORIDE
     Dosage: DILUTION 100ML NACL 0.9%
     Route: 042
     Dates: start: 20190709, end: 20190709
  5. SODIUM HYDROGEN CARBONATE [Concomitant]
     Active Substance: SODIUM BICARBONATE
  6. BISOPROLOL [Concomitant]
     Active Substance: BISOPROLOL
  7. SEVELAMER [Concomitant]
     Active Substance: SEVELAMER
  8. CYCLIZINE [Concomitant]
     Active Substance: CYCLIZINE
  9. ACETYLSALICYLIC ACID [Concomitant]
     Active Substance: ASPIRIN
  10. ARANESP [Concomitant]
     Active Substance: DARBEPOETIN ALFA
  11. ATORVASTATIN [Concomitant]
     Active Substance: ATORVASTATIN

REACTIONS (4)
  - Oxygen saturation decreased [Recovered/Resolved]
  - Arteriovenous fistula site complication [Unknown]
  - Dizziness [Unknown]
  - Hypotension [Recovered/Resolved]

NARRATIVE: CASE EVENT DATE: 20190709
